FAERS Safety Report 5238720-1 (Version None)
Quarter: 2007Q1

REPORT INFORMATION
  Report Type: 
  Country: None (occurrence: None)
  Receive Date: 20070215
  Receipt Date: 20070212
  Transmission Date: 20070707
  Serious: Yes (Other)
  Sender: FDA-Public Use
  Company Number: US-BOEHRINGER INGELHEIM PHARMACEUTICALS, INC.-2007-BP-01631BP

PATIENT
  Sex: Male
  Weight: 2.711 kg

DRUGS (3)
  1. VIRAMUNE [Suspect]
     Indication: HIV INFECTION
     Route: 015
     Dates: start: 20060301
  2. RETROVIR [Suspect]
     Indication: HIV INFECTION
     Route: 015
     Dates: start: 20061128, end: 20061128
  3. COMBIVIR [Suspect]
     Indication: HIV INFECTION
     Route: 015
     Dates: start: 20060301

REACTIONS (2)
  - MUSCLE DISORDER [None]
  - URETHRAL DISORDER [None]
